FAERS Safety Report 9854791 (Version 1)
Quarter: 2014Q1

REPORT INFORMATION
  Report Type: Spontaneous
  Country: US (occurrence: US)
  Receive Date: 20140130
  Receipt Date: 20140130
  Transmission Date: 20141002
  Serious: No
  Sender: FDA-Public Use
  Company Number: US-PFIZER INC-2014026928

PATIENT
  Sex: Female

DRUGS (3)
  1. PRISTIQ [Suspect]
     Dosage: 100 MG, 1X/DAY
  2. PRISTIQ [Suspect]
     Dosage: 150 MG, 1X/DAY
  3. WELLBUTRIN [Suspect]
     Dosage: UNK

REACTIONS (3)
  - Tremor [Unknown]
  - Flushing [Unknown]
  - Feeling hot [Unknown]
